FAERS Safety Report 6810745-1 (Version None)
Quarter: 2010Q2

REPORT INFORMATION
  Report Type: 
  Country: None (occurrence: None)
  Receive Date: 20100630
  Receipt Date: 20100621
  Transmission Date: 20101027
  Serious: Yes (Death, Hospitalization)
  Sender: FDA-Public Use
  Company Number: DE-ABBOTT-10P-062-0647938-00

PATIENT
  Age: 70 Year
  Sex: Male

DRUGS (2)
  1. HUMIRA [Suspect]
     Indication: PSORIASIS
     Route: 058
     Dates: start: 20080418, end: 20091010
  2. HUMIRA [Suspect]
     Route: 058
     Dates: start: 20091011

REACTIONS (9)
  - ADENOMA BENIGN [None]
  - AGITATION [None]
  - AORTIC ANEURYSM [None]
  - ATELECTASIS [None]
  - CYANOSIS [None]
  - HEPATIC CIRRHOSIS [None]
  - PERICARDIAL EFFUSION [None]
  - PNEUMONIA [None]
  - VOMITING [None]
